FAERS Safety Report 4610157-5 (Version None)
Quarter: 2005Q1

REPORT INFORMATION
  Report Type: 
  Country: None (occurrence: None)
  Receive Date: 20050316
  Receipt Date: 20050127
  Transmission Date: 20050727
  Serious: Yes (Death, Other)
  Sender: FDA-Public Use
  Company Number: 2005-01-1492

PATIENT
  Age: 42 Year
  Sex: Female
  Weight: 121 kg

DRUGS (11)
  1. ASPIRIN [Suspect]
     Indication: ILL-DEFINED DISORDER
     Dosage: 81MG PER DAY
     Route: 065
     Dates: start: 20041230, end: 20041231
  2. INTEGRILIN [Suspect]
     Indication: THERAPEUTIC PROCEDURE
     Route: 042
     Dates: start: 20041230, end: 20041230
  3. CLOPIDOGREL [Suspect]
     Indication: ILL-DEFINED DISORDER
     Dosage: 75MG PER DAY
     Route: 065
     Dates: start: 20041230, end: 20041231
  4. HEPARIN [Suspect]
     Indication: ILL-DEFINED DISORDER
     Route: 042
     Dates: start: 20041230, end: 20041231
  5. ATORVASTATIN CALCIUM [Concomitant]
     Route: 065
  6. PEPCID [Concomitant]
     Route: 065
  7. LISINOPRIL [Concomitant]
     Route: 065
  8. METOPROLOL [Concomitant]
     Route: 065
  9. INSULIN [Concomitant]
     Route: 065
  10. AVANDIA [Concomitant]
     Route: 065
  11. ACETAMINOPHEN [Concomitant]
     Route: 065
     Dates: start: 20041230, end: 20041230

REACTIONS (5)
  - ACUTE MYOCARDIAL INFARCTION [None]
  - BRADYCARDIA [None]
  - HYPOTENSION [None]
  - RENAL FAILURE [None]
  - RETROPERITONEAL HAEMORRHAGE [None]
